FAERS Safety Report 8267898-0 (Version None)
Quarter: 2012Q2

REPORT INFORMATION
  Report Type: 
  Country: None (occurrence: None)
  Receive Date: 20120404
  Receipt Date: 20120321
  Transmission Date: 20120825
  Serious: Yes (Life-Threatening, Hospitalization, Disabling, Other)
  Sender: FDA-Public Use
  Company Number: 2012MA003957

PATIENT
  Age: 72 Year
  Sex: Female

DRUGS (10)
  1. FLUTICASONE FUROATE [Concomitant]
  2. CHEMOTHERAPY [Concomitant]
  3. INDAPAMIDE [Suspect]
     Indication: HYPERTENSION
     Dosage: 2.5 MG;PO
     Route: 048
     Dates: start: 20120301, end: 20120303
  4. SALMETEROL [Concomitant]
  5. TIOTROPIUM [Concomitant]
  6. BROMIDE [Concomitant]
  7. VENTOLIN [Concomitant]
  8. TRIMETHOPRIM [Concomitant]
  9. TRIMOVATE [Concomitant]
  10. OMEPRAZOLE [Concomitant]

REACTIONS (9)
  - MALAISE [None]
  - MYALGIA [None]
  - HYPOMAGNESAEMIA [None]
  - URINE OUTPUT DECREASED [None]
  - BLOOD UREA INCREASED [None]
  - BLOOD CREATINE INCREASED [None]
  - DIALYSIS [None]
  - BLOOD CREATINE PHOSPHOKINASE INCREASED [None]
  - HYPONATRAEMIA [None]
